FAERS Safety Report 10722820 (Version 1)
Quarter: 2015Q1

REPORT INFORMATION
  Report Type: Spontaneous
  Country: IN (occurrence: IN)
  Receive Date: 20150120
  Receipt Date: 20150120
  Transmission Date: 20150721
  Serious: Yes (Hospitalization)
  Sender: FDA-Public Use
  Company Number: IN-MERCK-1501IND006332

PATIENT
  Age: 22 Year
  Sex: Male

DRUGS (6)
  1. PHENIRAMINE (CHLORPHENIRAMINE MALEATE) [Suspect]
     Active Substance: CHLORPHENIRAMINE MALEATE
     Indication: HYPERSENSITIVITY
     Dosage: 1 ML, QD
     Route: 042
     Dates: start: 2011
  2. DEXAMETHASONE. [Suspect]
     Active Substance: DEXAMETHASONE
     Indication: HYPERSENSITIVITY
     Dosage: 1 ML, QD
     Route: 042
     Dates: end: 2011
  3. GENTAMICIN SULFATE. [Suspect]
     Active Substance: GENTAMICIN SULFATE
     Dosage: 3 ML, TID
     Route: 042
     Dates: start: 2012
  4. PHENIRAMINE (CHLORPHENIRAMINE MALEATE) [Suspect]
     Active Substance: CHLORPHENIRAMINE MALEATE
     Dosage: 3 ML, TID
     Route: 042
     Dates: start: 2012
  5. GENTAMICIN SULFATE. [Suspect]
     Active Substance: GENTAMICIN SULFATE
     Indication: HYPERSENSITIVITY
     Dosage: 1 ML, QD
     Route: 042
     Dates: start: 2011
  6. DEXAMETHASONE. [Suspect]
     Active Substance: DEXAMETHASONE
     Dosage: 3 ML, TID
     Route: 042

REACTIONS (24)
  - Drug administration error [Unknown]
  - Respiratory tract infection [None]
  - Abnormal behaviour [Unknown]
  - Anxiety [None]
  - Osteonecrosis [Unknown]
  - Logorrhoea [None]
  - Irritability [None]
  - Hyperhidrosis [None]
  - Anaemia [None]
  - Depressed mood [None]
  - Skin lesion [None]
  - Dyspnoea [None]
  - Hypochondriasis [Unknown]
  - Mental disorder [Unknown]
  - Drug abuse [Unknown]
  - Drug dependence [Unknown]
  - Affective disorder [None]
  - Fatigue [None]
  - Gastrointestinal infection [None]
  - Musculoskeletal stiffness [None]
  - Body tinea [Unknown]
  - Euphoric mood [None]
  - Salivary hypersecretion [None]
  - Fungal infection [None]
